FAERS Safety Report 10179164 (Version 2)
Quarter: 2014Q2

REPORT INFORMATION
  Report Type: Spontaneous
  Country: US (occurrence: US)
  Receive Date: 20140519
  Receipt Date: 20140624
  Transmission Date: 20141212
  Serious: Yes (Hospitalization)
  Sender: FDA-Public Use
  Company Number: US-SA-2014SA061847

PATIENT
  Sex: Female

DRUGS (8)
  1. PLAVIX [Suspect]
     Indication: CEREBROVASCULAR ACCIDENT
     Route: 065
  2. PLAVIX [Suspect]
     Indication: CEREBROVASCULAR ACCIDENT
     Route: 065
  3. CARVEDILOL [Concomitant]
     Dosage: STRENGTH: 12.5
  4. TRAZODONE [Concomitant]
  5. LISINOPRIL [Concomitant]
  6. NIFEDICAL [Concomitant]
  7. TRAMADOL [Concomitant]
  8. LORAZEPAM [Concomitant]

REACTIONS (1)
  - Transient ischaemic attack [Recovered/Resolved]
